FAERS Safety Report 4662221-2 (Version None)
Quarter: 2005Q2

REPORT INFORMATION
  Report Type: 
  Country: None (occurrence: None)
  Receive Date: 20050512
  Receipt Date: 20050428
  Transmission Date: 20051028
  Serious: Yes (Hospitalization)
  Sender: FDA-Public Use
  Company Number: 2005067324

PATIENT
  Sex: Male

DRUGS (2)
  1. DILANTIN [Suspect]
     Indication: ILL-DEFINED DISORDER
     Dosage: ORAL
     Route: 048
  2. PHENOBARBITAL TAB [Suspect]
     Indication: ILL-DEFINED DISORDER

REACTIONS (2)
  - DRUG INEFFECTIVE [None]
  - UNEVALUABLE EVENT [None]
